FAERS Safety Report 9507469 (Version 1)
Quarter: 2013Q3

REPORT INFORMATION
  Report Type: Spontaneous
  Country: US (occurrence: None)
  Receive Date: 20130904
  Receipt Date: 20130904
  Transmission Date: 20140515
  Serious: Yes (Death)
  Sender: FDA-Public Use
  Company Number: UTC-037114

PATIENT
  Age: 52 Year
  Sex: Female
  Weight: 81.8 kg

DRUGS (2)
  1. TYVASO (6 MICROGRAM, AEROSOL FOR INHALATION) (TREPROSTINIL SODIUM) [Suspect]
     Indication: COR PULMONALE CHRONIC
     Dosage: 18 TO 54 MCG (4 IN 1 D)
     Route: 055
     Dates: start: 20121031
  2. LETAIRIS (AMBRISEN-TAN) (UNKNOWN) [Concomitant]

REACTIONS (1)
  - Death [None]
